FAERS Safety Report 9716051 (Version 1)
Quarter: 2013Q4

REPORT INFORMATION
  Report Type: Spontaneous
  Country: US (occurrence: US)
  Receive Date: 20131127
  Receipt Date: 20131127
  Transmission Date: 20140711
  Serious: No
  Sender: FDA-Public Use
  Company Number: US-009507513-1311USA006876

PATIENT
  Sex: Male

DRUGS (1)
  1. TEMODAR [Suspect]
     Indication: BRAIN NEOPLASM
     Dosage: TAKE FOR 5 DAYS AND THEN STOP FOR 23 DAYS
     Dates: start: 201309

REACTIONS (3)
  - Gastrostomy [Unknown]
  - Dysphagia [Unknown]
  - Drug dose omission [Unknown]
